FAERS Safety Report 9175260 (Version 5)
Quarter: 2013Q3

REPORT INFORMATION
  Report Type: Spontaneous
  Country: US (occurrence: US)
  Receive Date: 20130320
  Receipt Date: 20130923
  Transmission Date: 20140515
  Serious: Yes (Hospitalization, Other)
  Sender: FDA-Public Use
  Company Number: US-PFIZER INC-2013086627

PATIENT
  Age: 63 Year
  Sex: Male
  Weight: 127 kg

DRUGS (3)
  1. ZITHROMAX [Suspect]
     Indication: NASOPHARYNGITIS
     Dosage: UNK, DAILY
     Dates: start: 20120605, end: 20120609
  2. METFORMIN [Concomitant]
     Indication: DIABETES MELLITUS
     Dosage: UNK
  3. LANTUS [Concomitant]
     Dosage: UNK

REACTIONS (5)
  - Myocardial infarction [Unknown]
  - Atrial fibrillation [Unknown]
  - Asthenia [Unknown]
  - Cardiac disorder [Unknown]
  - Gait disturbance [Unknown]
